FAERS Safety Report 16871937 (Version 1)
Quarter: 2019Q4

REPORT INFORMATION
  Report Type: Report from Study
  Country: AT (occurrence: AT)
  Receive Date: 20191001
  Receipt Date: 20191001
  Transmission Date: 20200122
  Serious: Yes (Hospitalization, Other)
  Sender: FDA-Public Use
  Company Number: AT-BRISTOL-MYERS SQUIBB COMPANY-BMS-2019-077307

PATIENT
  Age: 71 Year
  Sex: Male
  Weight: 95 kg

DRUGS (24)
  1. NIVOLUMAB [Suspect]
     Active Substance: NIVOLUMAB
     Indication: TRANSITIONAL CELL CARCINOMA
     Dosage: 3 MILLIGRAM/KILOGRAM
     Route: 065
     Dates: start: 20190204
  2. TRAVOCORT [Concomitant]
     Active Substance: DIFLUCORTOLONE VALERATE\ISOCONAZOLE NITRATE
     Indication: ECZEMA
     Dosage: UNK, BID
     Route: 061
     Dates: start: 20190318, end: 20190328
  3. MARIGOLD [Concomitant]
     Indication: ECZEMA
     Dosage: UNK, PRN
     Route: 061
     Dates: start: 20190318
  4. PREDNISOLUT [PREDNISOLONE SODIUM SUCCINATE] [Concomitant]
     Indication: GENERAL PHYSICAL HEALTH DETERIORATION
     Dosage: 25 MILLIGRAM, QD
     Route: 042
     Dates: start: 20190603, end: 20190605
  5. PREDNISOLUT [PREDNISOLONE SODIUM SUCCINATE] [Concomitant]
     Indication: FATIGUE
     Dosage: 250/150/100 MG, QD
     Route: 042
     Dates: start: 20190705, end: 20190707
  6. PANTOLOC [PANTOPRAZOLE] [Concomitant]
     Active Substance: PANTOPRAZOLE SODIUM
     Indication: PRODUCT USED FOR UNKNOWN INDICATION
     Dosage: 40 MILLIGRAM, BID
     Route: 048
     Dates: start: 20190802
  7. PREDNISOLONE. [Concomitant]
     Active Substance: PREDNISOLONE
     Indication: GENERAL PHYSICAL HEALTH DETERIORATION
     Dosage: 25 MILLIGRAM (3-1-0)
     Route: 048
     Dates: start: 20190606, end: 20190607
  8. EXFORGE [Concomitant]
     Active Substance: AMLODIPINE BESYLATE\VALSARTAN
     Indication: PRODUCT USED FOR UNKNOWN INDICATION
     Dosage: 10 MG/60 MG, PRN
     Route: 048
     Dates: start: 20190603
  9. ALLOSTAD [Concomitant]
     Active Substance: ALLOPURINOL
     Indication: GOUTY ARTHRITIS
     Dosage: 100 MILLIGRAM, QD
     Route: 048
     Dates: start: 201412, end: 20190603
  10. PANTOLOC [PANTOPRAZOLE] [Concomitant]
     Active Substance: PANTOPRAZOLE SODIUM
     Indication: PROPHYLAXIS AGAINST GASTROINTESTINAL ULCER
     Dosage: 40 MILLIGRAM, QD
     Route: 048
     Dates: start: 20190606, end: 20190801
  11. PREDNISOLONE. [Concomitant]
     Active Substance: PREDNISOLONE
     Indication: PRODUCT USED FOR UNKNOWN INDICATION
     Dosage: 25 MILLIGRAM (1-1-0)
     Route: 048
     Dates: start: 20190611, end: 20190611
  12. IPILIMUMAB [Suspect]
     Active Substance: IPILIMUMAB
     Indication: TRANSITIONAL CELL CARCINOMA
     Dosage: 1 MILLIGRAM/KILOGRAM
     Route: 065
     Dates: start: 20190401
  13. EUTHYROX [Concomitant]
     Active Substance: LEVOTHYROXINE SODIUM
     Indication: PRODUCT USED FOR UNKNOWN INDICATION
     Dosage: 100 MICROGRAM, QD
     Route: 048
     Dates: start: 20190523
  14. MESALAZINE [Concomitant]
     Active Substance: MESALAMINE
     Indication: DIARRHOEA
     Dosage: 500 MILLIGRAM, TID
     Route: 048
     Dates: start: 20190802, end: 20190809
  15. RINGER LACTATED [Concomitant]
     Indication: GASTROINTESTINAL DISORDER
     Dosage: 1000 MILLILITER, QD
     Route: 042
     Dates: start: 20190208, end: 20190208
  16. MEXALEN [Concomitant]
     Active Substance: ACETAMINOPHEN
     Indication: GASTROINTESTINAL DISORDER
     Dosage: 500 MILLIGRAM, QD
     Route: 048
     Dates: start: 20190207, end: 20190207
  17. RINGER LACTATED [Concomitant]
     Indication: FATIGUE
     Dosage: 1000 MILLILITER, QD
     Route: 042
     Dates: start: 20190705, end: 20190708
  18. RINGER LACTATED [Concomitant]
     Indication: PRODUCT USED FOR UNKNOWN INDICATION
     Dosage: 1000 MILLILITER, QD
     Route: 042
     Dates: start: 20190802, end: 20190806
  19. HALCION [Concomitant]
     Active Substance: TRIAZOLAM
     Indication: SLEEP DISORDER
     Dosage: 0.25 MILLIGRAM, QD
     Route: 048
     Dates: start: 20190606
  20. PREDNISOLONE. [Concomitant]
     Active Substance: PREDNISOLONE
     Indication: PRODUCT USED FOR UNKNOWN INDICATION
     Dosage: 5 MILLIGRAM, QD
     Route: 048
     Dates: start: 20190709, end: 20190723
  21. RINGER LACTATED [Concomitant]
     Indication: DIARRHOEA
     Dosage: 1000 MILLILITER, QD
     Route: 042
     Dates: start: 20190603, end: 20190603
  22. EUTHYROX [Concomitant]
     Active Substance: LEVOTHYROXINE SODIUM
     Indication: HYPOTHYROIDISM
     Dosage: 50 MICROGRAM, QD
     Route: 048
     Dates: start: 20190507, end: 20190527
  23. PREDNISOLONE. [Concomitant]
     Active Substance: PREDNISOLONE
     Indication: FATIGUE
     Dosage: 25 MILLIGRAM (2-1-0)
     Route: 048
     Dates: start: 20190608, end: 20190610
  24. EXFORGE [Concomitant]
     Active Substance: AMLODIPINE BESYLATE\VALSARTAN
     Indication: HYPERTENSION
     Dosage: 10 MG/160 MG, QD
     Route: 048
     Dates: start: 20190304, end: 20190603

REACTIONS (2)
  - Dyspnoea [Recovered/Resolved]
  - Sepsis [Recovering/Resolving]

NARRATIVE: CASE EVENT DATE: 20190729
